FAERS Safety Report 24380751 (Version 4)
Quarter: 2024Q4

REPORT INFORMATION
  Report Type: Spontaneous
  Country: US (occurrence: US)
  Receive Date: 20240930
  Receipt Date: 20241217
  Transmission Date: 20250114
  Serious: No
  Sender: TRAVERE THERAPEUTICS
  Company Number: US-TRAVERE-2024TVT00950

PATIENT
  Sex: Male

DRUGS (2)
  1. FILSPARI [Suspect]
     Active Substance: SPARSENTAN
     Indication: IgA nephropathy
     Route: 048
     Dates: start: 202407
  2. FILSPARI [Suspect]
     Active Substance: SPARSENTAN
     Indication: Chronic kidney disease

REACTIONS (9)
  - Pruritus [None]
  - Dry skin [None]
  - Limb injury [Unknown]
  - Rotator cuff syndrome [Unknown]
  - Fall [Unknown]
  - Bone disorder [Unknown]
  - Peripheral swelling [Unknown]
  - Anaemia [Unknown]
  - Intervertebral disc disorder [Unknown]
